FAERS Safety Report 8740852 (Version 3)
Quarter: 2012Q4

REPORT INFORMATION
  Report Type: 
  Country: US (occurrence: US)
  Receive Date: 20120823
  Receipt Date: 20120913
  Transmission Date: 20130627
  Serious: Yes (Hospitalization, Other)
  Sender: FDA-Public Use
  Company Number: US-009507513-2011SP056413

PATIENT

DRUGS (4)
  1. NUVARING [Suspect]
     Indication: CONTRACEPTION
     Dates: start: 200902, end: 201007
  2. NUVARING [Suspect]
     Indication: MENSTRUAL CYCLE MANAGEMENT
     Dates: start: 20040130, end: 20091019
  3. NUVARING [Suspect]
     Dates: start: 20091203, end: 20100626
  4. NUVARING [Suspect]
     Dates: start: 20080201, end: 201007

REACTIONS (6)
  - Pulmonary embolism [Not Recovered/Not Resolved]
  - Deep vein thrombosis [Unknown]
  - Metaplasia [Unknown]
  - Limb discomfort [Recovered/Resolved]
  - Breast fibrosis [Unknown]
  - Breast enlargement [Unknown]
